FAERS Safety Report 5164247-1 (Version None)
Quarter: 2006Q4

REPORT INFORMATION
  Report Type: 
  Country: None (occurrence: None)
  Receive Date: 20060918
  Receipt Date: 20051212
  Transmission Date: 20070319
  Serious: Yes (Other)
  Sender: FDA-Public Use
  Company Number: US-JNJFOC-20050905585

PATIENT
  Age: 37 Year
  Sex: Female

DRUGS (2)
  1. TOPAMAX [Suspect]
     Indication: MIGRAINE PROPHYLAXIS
     Dosage: SEE IMAGE
     Route: 048
     Dates: start: 20050815, end: 20050821
  2. TOPAMAX [Suspect]
     Indication: MIGRAINE PROPHYLAXIS
     Dosage: SEE IMAGE
     Route: 048
     Dates: start: 20050822, end: 20050823

REACTIONS (1)
  - GLAUCOMA [None]
